FAERS Safety Report 19247413 (Version 3)
Quarter: 2021Q3

REPORT INFORMATION
  Report Type: Spontaneous
  Country: NL (occurrence: DE)
  Receive Date: 20210512
  Receipt Date: 20210929
  Transmission Date: 20211014
  Serious: Yes (Other)
  Sender: FDA-Public Use
  Company Number: DE-FRESENIUS KABI-FK202104637

PATIENT
  Age: 77 Year
  Sex: Female
  Weight: 76.7 kg

DRUGS (15)
  1. RIBOCICLIB SUCCINATE [Suspect]
     Active Substance: RIBOCICLIB
     Indication: BREAST CANCER
     Dosage: 21 DAYS INTAKE, 7 DAYS PAUSE
     Route: 048
     Dates: start: 20210204
  2. RIBOCICLIB SUCCINATE [Suspect]
     Active Substance: RIBOCICLIB
     Dosage: 21 DAYS INTAKE, 7 DAYS PAUSE
     Route: 048
     Dates: start: 20200127, end: 20200223
  3. FULVESTRANT. [Suspect]
     Active Substance: FULVESTRANT
     Indication: BREAST CANCER METASTATIC
  4. RIBOCICLIB SUCCINATE [Suspect]
     Active Substance: RIBOCICLIB
     Dosage: 21 DAYS INTAKE, 7 DAYS PAUSE
     Route: 048
     Dates: start: 20200225, end: 20200518
  5. FULVESTRANT. [Suspect]
     Active Substance: FULVESTRANT
     Indication: BREAST CANCER METASTATIC
     Dosage: 500 MG, Q4W (DAILY DOSE)
     Route: 030
     Dates: start: 20200127
  6. DENOSUMAB [Concomitant]
     Active Substance: DENOSUMAB
     Indication: PRODUCT USED FOR UNKNOWN INDICATION
     Dosage: 120 MG, QMO (EVERY FOUR WEEKS)
     Route: 058
     Dates: start: 20200914
  7. ZOLEDRONIC ACID (MANUFACTURER UNKNOWN) [Suspect]
     Active Substance: ZOLEDRONIC ACID
     Indication: PRODUCT USED FOR UNKNOWN INDICATION
     Route: 042
     Dates: start: 20191206, end: 20200817
  8. HYDROCHLOROTHIAZIDE/RAMIPRIL [Concomitant]
     Active Substance: HYDROCHLOROTHIAZIDE\RAMIPRIL
     Indication: HYPERTENSION
     Dosage: 1 DF (5/25 MG), QD
     Route: 048
     Dates: start: 1990
  9. RIBOCICLIB SUCCINATE [Suspect]
     Active Substance: RIBOCICLIB
     Dosage: 21 DAYS INTAKE, 7 DAYS PAUSE
     Route: 048
     Dates: start: 20201217, end: 20210201
  10. FULVESTRANT. [Suspect]
     Active Substance: FULVESTRANT
     Indication: BREAST CANCER
     Dosage: FULVESTRANT PFS WITH SAFETYGLIDE
     Route: 065
  11. LERCANIDIPINE [Concomitant]
     Active Substance: LERCANIDIPINE
     Indication: HYPERTENSION
     Dosage: 1 DF (18,88 MG) QD (MORNING)
     Route: 048
     Dates: start: 20200303
  12. RIBOCICLIB SUCCINATE [Suspect]
     Active Substance: RIBOCICLIB
     Indication: BREAST CANCER METASTATIC
     Dosage: 21 DAYS INTAKE, 7 DAYS PAUSE
     Route: 048
     Dates: start: 20200526, end: 20201215
  13. FULVESTRANT. [Suspect]
     Active Substance: FULVESTRANT
     Indication: BREAST CANCER
     Dosage: 500 MG, Q2W (DAILY DOSE)
     Route: 030
     Dates: start: 20191230, end: 20200126
  14. RAMIPRIL. [Concomitant]
     Active Substance: RAMIPRIL
     Indication: HYPERTENSION
     Dosage: 5 MG, QD
     Route: 048
     Dates: start: 1990
  15. BISOPROLOL [Concomitant]
     Active Substance: BISOPROLOL
     Indication: HYPERTENSION
     Dosage: 5 MG, BID
     Route: 048
     Dates: start: 1990

REACTIONS (7)
  - Dyspnoea [Not Recovered/Not Resolved]
  - Pruritus [Recovering/Resolving]
  - Anaemia [Recovered/Resolved]
  - Diabetes mellitus [Not Recovered/Not Resolved]
  - Eastern Cooperative Oncology Group performance status worsened [Not Recovered/Not Resolved]
  - Blood creatinine increased [Not Recovered/Not Resolved]
  - Blood pressure increased [Not Recovered/Not Resolved]

NARRATIVE: CASE EVENT DATE: 20200224
